FAERS Safety Report 9341340 (Version 2)
Quarter: 2013Q2

REPORT INFORMATION
  Report Type: Spontaneous
  Country: US (occurrence: US)
  Receive Date: 20130611
  Receipt Date: 20130612
  Transmission Date: 20140414
  Serious: No
  Sender: FDA-Public Use
  Company Number: US-009507513-1305USA017699

PATIENT
  Sex: Female

DRUGS (4)
  1. NASONEX [Suspect]
     Indication: HYPERSENSITIVITY
     Dosage: 1 DF IN EACH NOSTRIL, QD
     Route: 045
     Dates: start: 2012
  2. METOPROLOL [Concomitant]
  3. PRADAXA [Concomitant]
  4. LEVOXYL [Concomitant]

REACTIONS (3)
  - Nasal discomfort [Not Recovered/Not Resolved]
  - Product odour abnormal [Unknown]
  - Product quality issue [Unknown]
